FAERS Safety Report 22039487 (Version 2)
Quarter: 2023Q2

REPORT INFORMATION
  Report Type: Report from Study
  Country: US (occurrence: US)
  Receive Date: 20230227
  Receipt Date: 20230414
  Transmission Date: 20230722
  Serious: Yes (Death, Other)
  Sender: FDA-Public Use
  Company Number: US-BoehringerIngelheim-2023-BI-220935

PATIENT
  Age: 60 Year
  Sex: Male
  Weight: 63.7 kg

DRUGS (5)
  1. NINTEDANIB [Suspect]
     Active Substance: NINTEDANIB
     Indication: Hypersensitivity pneumonitis
     Route: 048
     Dates: start: 20200128, end: 20210301
  2. IMURAN [Concomitant]
     Active Substance: AZATHIOPRINE
     Indication: Hypersensitivity pneumonitis
     Route: 048
     Dates: start: 201801, end: 20220318
  3. PROZAC [Concomitant]
     Active Substance: FLUOXETINE HYDROCHLORIDE
     Indication: Depression
     Route: 048
     Dates: start: 20220602
  4. LOPRESSOR [Concomitant]
     Active Substance: METOPROLOL TARTRATE
     Indication: Supraventricular tachycardia
     Route: 048
     Dates: start: 20200620
  5. LISINOPRIL [Concomitant]
     Active Substance: LISINOPRIL
     Indication: Aortic dissection
     Route: 048
     Dates: start: 20200818

REACTIONS (1)
  - Hypersensitivity pneumonitis [Fatal]

NARRATIVE: CASE EVENT DATE: 20220601
